FAERS Safety Report 7019068-1 (Version None)
Quarter: 2010Q3

REPORT INFORMATION
  Report Type: 
  Country: None (occurrence: None)
  Receive Date: 20100928
  Receipt Date: 20100921
  Transmission Date: 20110219
  Serious: Yes (Death, Hospitalization)
  Sender: FDA-Public Use
  Company Number: A0882357A

PATIENT
  Sex: Male

DRUGS (2)
  1. AVANDIA [Suspect]
     Dates: start: 19990601, end: 20070417
  2. MULTIPLE MEDICATION [Concomitant]

REACTIONS (15)
  - BLINDNESS [None]
  - BRAIN DEATH [None]
  - CARDIAC DISORDER [None]
  - CARDIAC PACEMAKER INSERTION [None]
  - CEREBROVASCULAR ACCIDENT [None]
  - CHOKING [None]
  - CHRONIC OBSTRUCTIVE PULMONARY DISEASE [None]
  - CIRCULATORY COLLAPSE [None]
  - DIALYSIS [None]
  - DYSPHAGIA [None]
  - HIP FRACTURE [None]
  - HIP SURGERY [None]
  - PNEUMONIA [None]
  - TRACHEOSTOMY [None]
  - TRANSIENT ISCHAEMIC ATTACK [None]
